FAERS Safety Report 14066864 (Version 1)
Quarter: 2017Q4

REPORT INFORMATION
  Report Type: Spontaneous
  Country: US (occurrence: US)
  Receive Date: 20171006
  Receipt Date: 20171006
  Transmission Date: 20180321
  Serious: No
  Sender: FDA-Public Use
  Company Number: None

PATIENT
  Age: 44 Year
  Sex: Female

DRUGS (4)
  1. THALIDOMIDE [Suspect]
     Active Substance: THALIDOMIDE
     Indication: CHRONIC CUTANEOUS LUPUS ERYTHEMATOSUS
     Dosage: 100 MG AT BEDTIME ORAL
     Route: 048
  2. LIDOCAINE. [Concomitant]
     Active Substance: LIDOCAINE
  3. HYDROXYCHLOROQUINE [Concomitant]
     Active Substance: HYDROXYCHLOROQUINE
  4. DOXEPIN [Concomitant]
     Active Substance: DOXEPIN

REACTIONS (5)
  - Constipation [None]
  - Arthralgia [None]
  - Abdominal pain [None]
  - Nausea [None]
  - Arthritis [None]
